FAERS Safety Report 16004034 (Version 2)
Quarter: 2019Q1

REPORT INFORMATION
  Report Type: Spontaneous
  Country: FR (occurrence: FR)
  Receive Date: 20190225
  Receipt Date: 20190225
  Transmission Date: 20190418
  Serious: Yes (Hospitalization)
  Sender: FDA-Public Use
  Company Number: FR-ACCORD-108628

PATIENT
  Age: 85 Year
  Sex: Male
  Weight: 79 kg

DRUGS (11)
  1. XATRAL [Suspect]
     Active Substance: ALFUZOSIN
     Indication: PRODUCT USED FOR UNKNOWN INDICATION
     Dosage: STRENGTH: 2.5 MG
     Route: 048
  2. PERMIXON [Concomitant]
     Active Substance: HERBALS\SAW PALMETTO
     Dosage: STRENGTH: 160 MG
     Route: 048
  3. ESOMEPRAZOLE/ESOMEPRAZOLE MAGNESIUM/ESOMEPRAZOLE SODIUM [Concomitant]
     Route: 048
  4. BISOPROLOL [Suspect]
     Active Substance: BISOPROLOL
     Indication: PRODUCT USED FOR UNKNOWN INDICATION
     Route: 048
  5. ENTRESTO [Concomitant]
     Active Substance: SACUBITRIL\VALSARTAN
     Dosage: STRENGTH: 24 MG / 26 MG
     Route: 048
  6. ATORVASTATIN [Concomitant]
     Active Substance: ATORVASTATIN
     Dosage: STRENGTH: 20 MG
     Route: 048
  7. POLERY [Concomitant]
     Active Substance: CODEINE\SISYMBRIUM OFFICINALE WHOLE
     Route: 048
  8. FUROSEMIDE. [Suspect]
     Active Substance: FUROSEMIDE
     Indication: PRODUCT USED FOR UNKNOWN INDICATION
     Route: 048
  9. DUTASTERIDE. [Concomitant]
     Active Substance: DUTASTERIDE
     Route: 048
  10. PREVISCAN [Concomitant]
     Dosage: STRENGTH: 20 MG, SCORED TABLET
     Route: 048
  11. KALEORID LP [Concomitant]
     Active Substance: POTASSIUM CHLORIDE
     Dosage: STRENGTH: 600 MG
     Route: 048

REACTIONS (3)
  - Orthostatic hypotension [Recovered/Resolved]
  - Dehydration [Recovered/Resolved]
  - Acute kidney injury [Recovered/Resolved]

NARRATIVE: CASE EVENT DATE: 20180719
